FAERS Safety Report 16810238 (Version 2)
Quarter: 2019Q4

REPORT INFORMATION
  Report Type: Spontaneous
  Country: PT (occurrence: PT)
  Receive Date: 20190916
  Receipt Date: 20191003
  Transmission Date: 20200122
  Serious: Yes (Hospitalization, Other)
  Sender: FDA-Public Use
  Company Number: PT-MYLANLABS-2019M1085483

PATIENT
  Age: 18 Month
  Sex: Male
  Weight: 8.3 kg

DRUGS (22)
  1. PIPERACILLIN/TAZOBACTAM [Suspect]
     Active Substance: PIPERACILLIN SODIUM\TAZOBACTAM SODIUM
     Indication: PSEUDOMONAS INFECTION
  2. AMPHOTERICIN B. [Suspect]
     Active Substance: AMPHOTERICIN B
     Indication: PSEUDOMONAS INFECTION
     Dosage: UNK
     Route: 065
  3. METRONIDAZOLE. [Suspect]
     Active Substance: METRONIDAZOLE
     Indication: PSEUDOMONAS INFECTION
     Dosage: UNK
     Route: 042
  4. GENTAMICIN. [Suspect]
     Active Substance: GENTAMICIN
     Indication: DEVICE RELATED INFECTION
     Dosage: UNK
     Route: 042
  5. FLUCONAZOLE. [Suspect]
     Active Substance: FLUCONAZOLE
     Indication: DEVICE RELATED INFECTION
     Dosage: UNK
     Route: 042
  6. PIPERACILLIN/TAZOBACTAM [Suspect]
     Active Substance: PIPERACILLIN SODIUM\TAZOBACTAM SODIUM
     Indication: CANDIDA INFECTION
     Dosage: UNK, FIRST ADMNISTRATION ON DAY 25 OF HOSPITALIZATION- THIRD ANTIBIOTIC CYCLE
     Route: 042
  7. VANCOMYCIN [Suspect]
     Active Substance: VANCOMYCIN
     Indication: STAPHYLOCOCCAL INFECTION
     Dosage: , FIRST ADMNISTRATION ( ON DAY 1 OF HOSPITALIZATION)UNK
     Route: 042
  8. VANCOMYCIN [Suspect]
     Active Substance: VANCOMYCIN
     Indication: DEVICE RELATED INFECTION
  9. AMPHOTERICIN B. [Suspect]
     Active Substance: AMPHOTERICIN B
     Indication: CANDIDA INFECTION
     Dosage: UNK
     Route: 042
  10. METRONIDAZOLE. [Suspect]
     Active Substance: METRONIDAZOLE
     Indication: CANDIDA INFECTION
     Dosage: UNK
     Route: 042
  11. CEFTAZIDIME. [Concomitant]
     Active Substance: CEFTAZIDIME
     Indication: PSEUDOMONAS INFECTION
     Dosage: UNK
     Route: 042
  12. GENTAMICIN. [Suspect]
     Active Substance: GENTAMICIN
     Indication: STAPHYLOCOCCAL INFECTION
     Dosage: UNK, FIRST ADMNISTRATION ( ON DAY 1 OF HOSPITALIZATION)
     Route: 042
  13. GENTAMICIN. [Suspect]
     Active Substance: GENTAMICIN
     Indication: PSEUDOMONAS INFECTION
     Dosage: UNK, 2ND ADMIN : 3 DAYS AFTER FINISHING THE FIRST COURSE OF ANTIBIOTICS (ON DAY 16 OF HOSP
     Route: 042
  14. METRONIDAZOLE. [Suspect]
     Active Substance: METRONIDAZOLE
     Indication: DEVICE RELATED INFECTION
     Dosage: UNK
     Route: 042
  15. FLUCONAZOLE. [Suspect]
     Active Substance: FLUCONAZOLE
     Indication: PSEUDOMONAS INFECTION
  16. CEFTAZIDIME. [Concomitant]
     Active Substance: CEFTAZIDIME
     Indication: DEVICE RELATED INFECTION
     Dosage: UNK, STOPED ON DAY 24
     Route: 042
  17. VANCOMYCIN [Suspect]
     Active Substance: VANCOMYCIN
     Indication: CANDIDA INFECTION
     Dosage: UNK, FIRST ADMNISTRATION ON DAY 25 OF HOSPITALIZATION- THIRD ANTIBIOTIC CYCLE
     Route: 042
  18. PIPERACILLIN/TAZOBACTAM [Suspect]
     Active Substance: PIPERACILLIN SODIUM\TAZOBACTAM SODIUM
     Indication: DEVICE RELATED INFECTION
  19. GENTAMICIN. [Suspect]
     Active Substance: GENTAMICIN
     Indication: CANDIDA INFECTION
     Dosage: UNK
     Route: 065
  20. VANCOMYCIN [Suspect]
     Active Substance: VANCOMYCIN
     Indication: PSEUDOMONAS INFECTION
     Dosage: UNK
     Route: 042
  21. FLUCONAZOLE. [Suspect]
     Active Substance: FLUCONAZOLE
     Indication: CANDIDA INFECTION
     Dosage: UNK, FIRST ADMNISTRATION ON DAY 25 OF HOSPITALIZATION- THIRD ANTIBIOTIC CYCLE
     Route: 042
  22. CEFTAZIDIME. [Concomitant]
     Active Substance: CEFTAZIDIME
     Indication: CANDIDA INFECTION
     Dosage: , STARTED 3 DAYS AFTER FINISHING THE FIRST COURSE OF ANTIBIOTICS ( ON DAY 16 OF HOSPITALIZATION)
     Route: 042

REACTIONS (11)
  - Ascites [Recovering/Resolving]
  - Respiratory alkalosis [Recovering/Resolving]
  - Acute kidney injury [Recovered/Resolved]
  - Generalised oedema [Recovering/Resolving]
  - Weight increased [Recovering/Resolving]
  - Nephropathy toxic [Recovering/Resolving]
  - Metabolic acidosis [Recovering/Resolving]
  - Product use issue [Unknown]
  - Pleural effusion [Recovering/Resolving]
  - Oliguria [Recovering/Resolving]
  - Off label use [Unknown]
